FAERS Safety Report 4531073-3 (Version None)
Quarter: 2004Q4

REPORT INFORMATION
  Report Type: 
  Country: None (occurrence: None)
  Receive Date: 20041215
  Receipt Date: 20041203
  Transmission Date: 20050328
  Serious: No
  Sender: FDA-Public Use
  Company Number: 04H-087-0278862-00

PATIENT
  Age: 67 Year
  Sex: Female

DRUGS (5)
  1. HEPARIN SODIUM [Suspect]
     Indication: ANTICOAGULANT THERAPY
     Dosage: 20000 UNIT, DAILY
     Dates: start: 20011217, end: 20011227
  2. OZAGREL SODIUM [Concomitant]
  3. EDARAVONE [Concomitant]
  4. PHENYTOIN [Concomitant]
  5. GALENIC / PANIPENEM/BETAMIPROM/ [Concomitant]

REACTIONS (2)
  - CEREBRAL INFARCTION [None]
  - HEPARIN-INDUCED THROMBOCYTOPENIA [None]
